FAERS Safety Report 15064943 (Version 1)
Quarter: 2018Q2

REPORT INFORMATION
  Report Type: Spontaneous
  Country: US (occurrence: US)
  Receive Date: 20180626
  Receipt Date: 20180626
  Transmission Date: 20180711
  Serious: Yes (Other)
  Sender: FDA-Public Use
  Company Number: US-BEH-2018091978

PATIENT
  Age: 41 Year
  Sex: Female

DRUGS (28)
  1. TAMIFLU [Concomitant]
     Active Substance: OSELTAMIVIR PHOSPHATE
  2. MIRTAZAPINE. [Concomitant]
     Active Substance: MIRTAZAPINE
     Indication: PRODUCT USED FOR UNKNOWN INDICATION
     Dosage: 45 MG, UNK
     Route: 065
  3. LAMOTRIGINE. [Concomitant]
     Active Substance: LAMOTRIGINE
  4. HIZENTRA [Suspect]
     Active Substance: HUMAN IMMUNOGLOBULIN G
     Dosage: UNK
     Route: 058
  5. LEVAQUIN [Concomitant]
     Active Substance: LEVOFLOXACIN
  6. AMBIEN [Concomitant]
     Active Substance: ZOLPIDEM TARTRATE
     Indication: PRODUCT USED FOR UNKNOWN INDICATION
     Dosage: 10 MG, UNK
     Route: 065
  7. CLONAZEPAM. [Concomitant]
     Active Substance: CLONAZEPAM
     Indication: PRODUCT USED FOR UNKNOWN INDICATION
     Dosage: 1 MG, UNK
     Route: 065
  8. LITHOBID [Concomitant]
     Active Substance: LITHIUM CARBONATE
     Indication: PRODUCT USED FOR UNKNOWN INDICATION
     Dosage: 300 MG, UNK
     Route: 065
  9. SONATA                             /00061001/ [Concomitant]
     Active Substance: CARISOPRODOL
  10. LATUDA [Concomitant]
     Active Substance: LURASIDONE HYDROCHLORIDE
     Indication: PRODUCT USED FOR UNKNOWN INDICATION
     Dosage: 40 MG, UNK
     Route: 065
  11. TRAMADOL HCL [Concomitant]
     Active Substance: TRAMADOL HYDROCHLORIDE
  12. MELOXICAM. [Concomitant]
     Active Substance: MELOXICAM
  13. CYMBALTA [Concomitant]
     Active Substance: DULOXETINE HYDROCHLORIDE
  14. BUDESONIDE. [Concomitant]
     Active Substance: BUDESONIDE
  15. CODEINE W/GUAIFENESIN              /00693301/ [Concomitant]
     Active Substance: CODEINE\GUAIFENESIN
  16. HIZENTRA [Suspect]
     Active Substance: HUMAN IMMUNOGLOBULIN G
     Indication: IMMUNODEFICIENCY COMMON VARIABLE
     Dosage: 4 G, EVERY 3 DAYS
     Route: 058
     Dates: start: 201612
  17. DOXYCYCLINE. [Concomitant]
     Active Substance: DOXYCYCLINE
  18. UMECLIDINIUM [Concomitant]
     Active Substance: UMECLIDINIUM BROMIDE
  19. PREDNISONE. [Concomitant]
     Active Substance: PREDNISONE
  20. MEDROL [Concomitant]
     Active Substance: METHYLPREDNISOLONE
  21. FLUTICASONE FUROATE [Concomitant]
     Active Substance: FLUTICASONE FUROATE
     Route: 055
  22. SINGULAIR [Concomitant]
     Active Substance: MONTELUKAST SODIUM
     Indication: PRODUCT USED FOR UNKNOWN INDICATION
     Dosage: 10 MG, UNK
     Route: 065
  23. TESSALON [Concomitant]
     Active Substance: BENZONATATE
  24. AZITHROMYCIN ANHYDROUS. [Concomitant]
     Active Substance: AZITHROMYCIN ANHYDROUS
  25. TRAZODONE [Concomitant]
     Active Substance: TRAZODONE HYDROCHLORIDE
     Indication: PRODUCT USED FOR UNKNOWN INDICATION
     Dosage: 100 MG, UNK
     Route: 065
  26. CEFDINIR. [Concomitant]
     Active Substance: CEFDINIR
  27. CYCLOBENZAPRINE. [Concomitant]
     Active Substance: CYCLOBENZAPRINE
  28. ALBUTEROL SULFATE. [Concomitant]
     Active Substance: ALBUTEROL SULFATE

REACTIONS (6)
  - Muscle spasms [Unknown]
  - Cyst [Unknown]
  - Streptococcal urinary tract infection [Unknown]
  - Post procedural complication [Unknown]
  - Asthenia [Unknown]
  - Hysterectomy [Unknown]

NARRATIVE: CASE EVENT DATE: 2018
